FAERS Safety Report 7937931-1 (Version None)
Quarter: 2011Q4

REPORT INFORMATION
  Report Type: 
  Country: None (occurrence: None)
  Receive Date: 20111123
  Receipt Date: 20111121
  Transmission Date: 20120403
  Serious: Yes (Other)
  Sender: FDA-Public Use
  Company Number: KR-PFIZER INC-2011283788

PATIENT
  Sex: Male

DRUGS (1)
  1. CARDURA [Suspect]
     Dosage: UNK
     Route: 048
     Dates: start: 20110901

REACTIONS (6)
  - SWELLING [None]
  - PARAESTHESIA [None]
  - WEIGHT DECREASED [None]
  - POOR PERIPHERAL CIRCULATION [None]
  - SWELLING FACE [None]
  - PERIPHERAL COLDNESS [None]
